FAERS Safety Report 8431733-8 (Version None)
Quarter: 2012Q2

REPORT INFORMATION
  Report Type: 
  Country: None (occurrence: None)
  Receive Date: 20120613
  Receipt Date: 20120605
  Transmission Date: 20120825
  Serious: Yes (Hospitalization)
  Sender: FDA-Public Use
  Company Number: US-BAYER-2012-056991

PATIENT
  Age: 20 Year
  Sex: Female
  Weight: 90.612 kg

DRUGS (2)
  1. YASMIN [Suspect]
     Dosage: UNK
     Route: 048
  2. METFORMIN HCL [Concomitant]
     Indication: POLYCYSTIC OVARIES
     Dosage: 500 MG Q DAY
     Route: 048
     Dates: start: 20060711

REACTIONS (1)
  - PULMONARY EMBOLISM [None]
